FAERS Safety Report 14128027 (Version 2)
Quarter: 2017Q4

REPORT INFORMATION
  Report Type: Spontaneous
  Country: FR (occurrence: FR)
  Receive Date: 20171026
  Receipt Date: 20171120
  Transmission Date: 20180321
  Serious: Yes (Other)
  Sender: FDA-Public Use
  Company Number: FR-CIPLA LTD.-2017FR18525

PATIENT

DRUGS (2)
  1. GEMCITABINE [Suspect]
     Active Substance: GEMCITABINE\GEMCITABINE HYDROCHLORIDE
     Indication: ADENOCARCINOMA PANCREAS
     Dosage: 750 MG/M2, I.E. 1,000 MG TOTAL DOSE, IN 250 ML OF NACL
  2. SODIUM CHLORIDE. [Concomitant]
     Active Substance: SODIUM CHLORIDE
     Indication: ADENOCARCINOMA PANCREAS
     Dosage: 250 ML, UNK
     Route: 065

REACTIONS (2)
  - Infusion site extravasation [Unknown]
  - Chest pain [Recovered/Resolved]
